FAERS Safety Report 5032199-0 (Version None)
Quarter: 2006Q2

REPORT INFORMATION
  Report Type: 
  Country: None (occurrence: None)
  Receive Date: 20060619
  Receipt Date: 20060605
  Transmission Date: 20061013
  Serious: Yes (Other)
  Sender: FDA-Public Use
  Company Number: 2006043658

PATIENT
  Age: 74 Year
  Sex: Male

DRUGS (14)
  1. CAMPTOSAR [Suspect]
     Indication: COLON CANCER
     Dosage: (CYCLIC)
     Dates: start: 20050501, end: 20060222
  2. FLUOROURACIL [Suspect]
     Indication: ILL-DEFINED DISORDER
  3. LEUCOVORIN CALCIUM [Suspect]
     Indication: ILL-DEFINED DISORDER
  4. PAXIL [Concomitant]
  5. FLORINEF [Concomitant]
  6. K-DUR 10 [Concomitant]
  7. COUMADIN [Concomitant]
  8. PROMETHAZINE HYDROCHLORIDE TAB [Concomitant]
  9. ATIVAN [Concomitant]
  10. METRONIDAZOLE [Concomitant]
  11. PROMETHAZINE HYDROCHLORIDE TAB [Concomitant]
  12. METRONIDAZOLE [Concomitant]
  13. OXALIPLATIN (OXALIPLATIN) [Concomitant]
  14. FLUOROURACIL [Concomitant]

REACTIONS (13)
  - BALANCE DISORDER [None]
  - COGNITIVE DISORDER [None]
  - COORDINATION ABNORMAL [None]
  - DIAPHRAGMATIC DISORDER [None]
  - DIZZINESS [None]
  - IRRITABILITY [None]
  - MEMORY IMPAIRMENT [None]
  - ORTHOSTATIC HYPOTENSION [None]
  - PERSONALITY CHANGE [None]
  - POLLAKIURIA [None]
  - POLYNEUROPATHY [None]
  - PULMONARY EMBOLISM [None]
  - WEIGHT DECREASED [None]
